FAERS Safety Report 4754556-X (Version None)
Quarter: 2005Q3

REPORT INFORMATION
  Report Type: 
  Country: None (occurrence: None)
  Receive Date: 20050829
  Receipt Date: 20050713
  Transmission Date: 20060218
  Serious: Yes (Hospitalization)
  Sender: FDA-Public Use
  Company Number: US-MERCK-0507USA01909

PATIENT
  Age: 44 Year
  Sex: Female
  Weight: 73 kg

DRUGS (14)
  1. VIOXX [Suspect]
     Indication: ARTHRITIS
     Route: 048
     Dates: start: 20000401, end: 20031201
  2. TRIAMTERENE [Concomitant]
     Route: 065
  3. ACCUPRIL [Concomitant]
     Route: 065
  4. FERROUS SULFATE [Concomitant]
     Route: 065
  5. LOTREL [Concomitant]
     Route: 065
  6. LEVAQUIN [Concomitant]
     Route: 065
  7. TRAZODONE HYDROCHLORIDE [Concomitant]
     Route: 065
  8. ACETAMINOPHEN AND HYDROCODONE BITARTRATE [Concomitant]
     Route: 065
  9. PROPOXYPHENE NAPSYLATE [Concomitant]
     Route: 065
  10. TRIHEXYPHENIDYL HYDROCHLORIDE [Concomitant]
     Route: 065
  11. ZOLOFT [Concomitant]
     Route: 065
  12. SINGULAIR [Concomitant]
     Route: 048
  13. WARFARIN [Concomitant]
     Route: 065
  14. NEXIUM [Concomitant]
     Route: 065

REACTIONS (4)
  - ANXIETY [None]
  - CEREBROVASCULAR ACCIDENT [None]
  - MYOCARDIAL INFARCTION [None]
  - STRESS [None]
